FAERS Safety Report 6543558-9 (Version None)
Quarter: 2010Q1

REPORT INFORMATION
  Report Type: 
  Country: None (occurrence: None)
  Receive Date: 20100115
  Receipt Date: 20100107
  Transmission Date: 20100710
  Serious: Yes (Other)
  Sender: FDA-Public Use
  Company Number: 2010SP001218

PATIENT
  Age: 66 Year
  Sex: Female

DRUGS (4)
  1. MIRTAZAPINE [Suspect]
     Indication: DEPRESSION
     Dosage: 15 MG; QD; PO, 30 MG; QD; PO, 45 MG; QD; PO
     Route: 048
     Dates: end: 20091201
  2. MIRTAZAPINE [Suspect]
     Indication: DEPRESSION
     Dosage: 15 MG; QD; PO, 30 MG; QD; PO, 45 MG; QD; PO
     Route: 048
     Dates: start: 20091201, end: 20100101
  3. MIRTAZAPINE [Suspect]
     Indication: DEPRESSION
     Dosage: 15 MG; QD; PO, 30 MG; QD; PO, 45 MG; QD; PO
     Route: 048
     Dates: start: 20090901
  4. MIRTAZAPINE [Suspect]
     Indication: DEPRESSION
     Dosage: 15 MG; QD; PO, 30 MG; QD; PO, 45 MG; QD; PO
     Route: 048
     Dates: start: 20100104

REACTIONS (14)
  - ABNORMAL DREAMS [None]
  - ANXIETY [None]
  - ARTHRALGIA [None]
  - CHILLS [None]
  - CONSTIPATION [None]
  - DIZZINESS [None]
  - GENERALISED OEDEMA [None]
  - HEADACHE [None]
  - HOT FLUSH [None]
  - HYPERHIDROSIS [None]
  - PALPITATIONS [None]
  - TACHYCARDIA [None]
  - THIRST [None]
  - WEIGHT INCREASED [None]
